FAERS Safety Report 12864964 (Version 1)
Quarter: 2016Q4

REPORT INFORMATION
  Report Type: Spontaneous
  Country: US (occurrence: US)
  Receive Date: 20161019
  Receipt Date: 20161019
  Transmission Date: 20170207
  Serious: No
  Sender: FDA-Public Use
  Company Number: None

PATIENT
  Age: 73 Year
  Sex: Male
  Weight: 58.5 kg

DRUGS (2)
  1. PROPOFOL. [Suspect]
     Active Substance: PROPOFOL
     Indication: GASTROOESOPHAGEAL REFLUX DISEASE
     Dosage: 10 MG/CC 1%
     Route: 042
     Dates: start: 20160920, end: 20160920
  2. PROPOFOL. [Suspect]
     Active Substance: PROPOFOL
     Indication: SCAN
     Dosage: 10 MG/CC 1%
     Route: 042
     Dates: start: 20160920, end: 20160920

REACTIONS (1)
  - Erection increased [None]

NARRATIVE: CASE EVENT DATE: 20160920
